FAERS Safety Report 8642898 (Version 2)
Quarter: 2012Q4

REPORT INFORMATION
  Report Type: Report from Study
  Country: IT (occurrence: IT)
  Receive Date: 20120629
  Receipt Date: 20120917
  Transmission Date: 20130627
  Serious: Yes (Hospitalization, Other)
  Sender: FDA-Public Use
  Company Number: IT-CELGENEUS-083-21880-12062586

PATIENT

DRUGS (4)
  1. REVLIMID [Suspect]
     Indication: LYMPHOMA
     Dosage: 25 Milligram
     Route: 048
     Dates: start: 20090724, end: 20090727
  2. DEXAMETHASONE [Concomitant]
     Indication: LYMPHOMA
     Route: 065
  3. CONGESCOR [Concomitant]
     Indication: CARDIOMYOPATHY
     Dosage: 5 Milligram
     Route: 048
     Dates: start: 20080208, end: 20080908
  4. ZESTRIL [Concomitant]
     Indication: CARDIOMYOPATHY
     Dosage: 5 Milligram
     Route: 048
     Dates: start: 20080110, end: 20080908

REACTIONS (5)
  - Cerebrospinal fluid leakage [Not Recovered/Not Resolved]
  - Pneumonia [Recovered/Resolved]
  - Conduction disorder [Not Recovered/Not Resolved]
  - Enterocolitis infectious [Not Recovered/Not Resolved]
  - Cytomegalovirus infection [Not Recovered/Not Resolved]
